FAERS Safety Report 6338048-2 (Version None)
Quarter: 2009Q3

REPORT INFORMATION
  Report Type: 
  Country: None (occurrence: None)
  Receive Date: 20090902
  Receipt Date: 20090822
  Transmission Date: 20100115
  Serious: Yes (Other)
  Sender: FDA-Public Use
  Company Number: US-PFIZER INC-2009261261

PATIENT
  Sex: Female
  Weight: 58.059 kg

DRUGS (6)
  1. LIPITOR [Suspect]
     Indication: BLOOD CHOLESTEROL INCREASED
     Dosage: 20MG
     Route: 048
  2. LIPITOR [Suspect]
     Dosage: 40 MG, 1X/DAY
  3. LIPITOR [Suspect]
     Dosage: 80 MG, 1X/DAY
  4. CLOPIDOGREL [Concomitant]
  5. ISOSORBIDE DINITRATE [Concomitant]
  6. ACETYLSALICYLIC ACID [Concomitant]

REACTIONS (6)
  - ANGINA PECTORIS [None]
  - ARTERIOSCLEROSIS [None]
  - MALAISE [None]
  - MUSCLE INJURY [None]
  - PAIN IN EXTREMITY [None]
  - STENT PLACEMENT [None]
